FAERS Safety Report 7821198-9 (Version None)
Quarter: 2011Q4

REPORT INFORMATION
  Report Type: 
  Country: None (occurrence: None)
  Receive Date: 20111018
  Receipt Date: 20111017
  Transmission Date: 20120403
  Serious: Yes (Hospitalization, Other)
  Sender: FDA-Public Use
  Company Number: GR-PFIZER INC-2011160492

PATIENT
  Sex: Female

DRUGS (3)
  1. PANWARFIN [Suspect]
     Indication: ANTICOAGULANT THERAPY
     Dosage: UNK
  2. REVATIO [Suspect]
     Indication: PULMONARY HYPERTENSION
     Dosage: UNK
  3. AMBRISENTAN [Concomitant]
     Indication: PULMONARY ARTERIAL HYPERTENSION
     Dosage: UNK

REACTIONS (3)
  - GASTRIC HAEMORRHAGE [None]
  - GASTRIC POLYPS [None]
  - INTERNATIONAL NORMALISED RATIO INCREASED [None]
